FAERS Safety Report 8092431-6 (Version None)
Quarter: 2012Q1

REPORT INFORMATION
  Report Type: 
  Country: None (occurrence: None)
  Receive Date: 20120128
  Receipt Date: 20110826
  Transmission Date: 20120608
  Serious: No
  Sender: FDA-Public Use
  Company Number: US-ABBOTT-11P-163-0851284-00

PATIENT
  Sex: Female
  Weight: 59.02 kg

DRUGS (3)
  1. HUMIRA [Suspect]
     Dates: start: 20110815
  2. HUMIRA [Suspect]
     Indication: CROHN'S DISEASE
     Dates: start: 20110301, end: 20110815
  3. PENTASA [Concomitant]
     Indication: CROHN'S DISEASE

REACTIONS (2)
  - FAECAL INCONTINENCE [None]
  - ABDOMINAL PAIN [None]
